FAERS Safety Report 6830342-1 (Version None)
Quarter: 2010Q3

REPORT INFORMATION
  Report Type: 
  Country: None (occurrence: None)
  Receive Date: 20100712
  Receipt Date: 20100630
  Transmission Date: 20110219
  Serious: No
  Sender: FDA-Public Use
  Company Number: US-BIOGENIDEC-2010BI014787

PATIENT
  Age: 58 Year
  Sex: Female

DRUGS (1)
  1. TYSABRI [Suspect]
     Indication: MULTIPLE SCLEROSIS
     Route: 042
     Dates: start: 20090902

REACTIONS (8)
  - ARTHRALGIA [None]
  - ASTHENIA [None]
  - HEADACHE [None]
  - INFUSION SITE EXFOLIATION [None]
  - INSOMNIA [None]
  - MIGRAINE [None]
  - NECK PAIN [None]
  - POOR VENOUS ACCESS [None]
